FAERS Safety Report 4636439-9 (Version None)
Quarter: 2005Q2

REPORT INFORMATION
  Report Type: 
  Country: None (occurrence: None)
  Receive Date: 20050413
  Receipt Date: 20050413
  Transmission Date: 20051028
  Serious: No
  Sender: FDA-Public Use
  Company Number: None

PATIENT
  Sex: Male
  Weight: 73.7 kg

DRUGS (3)
  1. CARBOPLATIN [Suspect]
     Dates: start: 20041019
  2. TAXOL [Suspect]
  3. FLUOROURACIL [Suspect]

REACTIONS (17)
  - ABSCESS [None]
  - ANASTOMOTIC LEAK [None]
  - BRONCHIAL FISTULA [None]
  - DIARRHOEA [None]
  - DYSPNOEA [None]
  - HAEMATEMESIS [None]
  - HAEMOPTYSIS [None]
  - HAEMORRHAGE [None]
  - JEJUNOSTOMY [None]
  - OBSTRUCTIVE AIRWAYS DISORDER [None]
  - OESOPHAGOGASTRECTOMY [None]
  - PNEUMONIA [None]
  - PROCEDURAL COMPLICATION [None]
  - PYLOROPLASTY [None]
  - RADIATION INJURY [None]
  - THROMBOSIS [None]
  - WEIGHT DECREASED [None]
